FAERS Safety Report 8767545 (Version 1)
Quarter: 2012Q4

REPORT INFORMATION
  Report Type: 
  Country: FR (occurrence: FR)
  Receive Date: 20120904
  Receipt Date: 20120904
  Transmission Date: 20130627
  Serious: Yes (Death)
  Sender: FDA-Public Use
  Company Number: FR-ACTELION-A-CH2012-70707

PATIENT
  Age: 12 Year
  Sex: Male

DRUGS (1)
  1. ZAVESCA [Suspect]
     Indication: NIEMANN-PICK DISEASE
     Dosage: UNK mg, qd
     Route: 048

REACTIONS (4)
  - Pneumonia aspiration [Fatal]
  - Cerebellar atrophy [Unknown]
  - Neurological symptom [Unknown]
  - Condition aggravated [Unknown]
